FAERS Safety Report 8544739-5 (Version None)
Quarter: 2012Q3

REPORT INFORMATION
  Report Type: 
  Country: None (occurrence: None)
  Receive Date: 20120727
  Receipt Date: 20120719
  Transmission Date: 20120928
  Serious: Yes (Hospitalization)
  Sender: FDA-Public Use
  Company Number: AU-BRISTOL-MYERS SQUIBB COMPANY-16784803

PATIENT
  Age: 73 Year
  Sex: Male
  Weight: 62 kg

DRUGS (8)
  1. ENOXAPARIN SODIUM [Concomitant]
     Dates: start: 20110701
  2. PACLITAXEL [Suspect]
     Indication: GASTRIC CANCER
     Route: 042
     Dates: start: 20120201, end: 20120509
  3. RANITIDINE [Concomitant]
     Dates: start: 20120509, end: 20120509
  4. GRANISETRON [Concomitant]
     Dates: start: 20120509, end: 20120509
  5. OMEPRAZOLE [Concomitant]
     Indication: GASTROOESOPHAGEAL REFLUX DISEASE
     Dates: start: 20110101
  6. PROMETHAZINE [Concomitant]
     Dates: start: 20120509, end: 20120509
  7. DEXAMETHASONE [Concomitant]
     Dates: start: 20120509, end: 20120509
  8. PERINDOPRIL ERBUMINE [Concomitant]
     Indication: HYPERTENSION
     Dates: start: 20120207

REACTIONS (2)
  - DYSPNOEA [None]
  - FATIGUE [None]
